FAERS Safety Report 14061265 (Version 4)
Quarter: 2018Q2

REPORT INFORMATION
  Report Type: Report from Study
  Country: None (occurrence: US)
  Receive Date: 20171009
  Receipt Date: 20180626
  Transmission Date: 20180711
  Serious: Yes (Hospitalization)
  Sender: FDA-Public Use
  Company Number: US-ABBVIE-17K-163-2118685-00

PATIENT
  Age: 62 Year
  Sex: Female
  Weight: 61.74 kg

DRUGS (2)
  1. HUMIRA [Suspect]
     Active Substance: ADALIMUMAB
     Indication: CROHN^S DISEASE
     Route: 058
     Dates: start: 20170811, end: 20170922
  2. HUMIRA [Suspect]
     Active Substance: ADALIMUMAB
     Route: 058
     Dates: end: 2018

REACTIONS (5)
  - Abscess intestinal [Recovered/Resolved]
  - Gastrointestinal stoma output increased [Recovering/Resolving]
  - Small intestinal perforation [Recovered/Resolved]
  - Night sweats [Recovered/Resolved]
  - Dermatitis allergic [Recovering/Resolving]

NARRATIVE: CASE EVENT DATE: 201709
